FAERS Safety Report 4706541-1 (Version None)
Quarter: 2005Q2

REPORT INFORMATION
  Report Type: 
  Country: None (occurrence: None)
  Receive Date: 20050629
  Receipt Date: 20050502
  Transmission Date: 20051028
  Serious: No
  Sender: FDA-Public Use
  Company Number: 05P-163-0298964-00

PATIENT
  Age: 54 Year
  Sex: Male
  Weight: 86.1834 kg

DRUGS (8)
  1. HUMIRA [Suspect]
     Indication: ANKYLOSING SPONDYLITIS
     Dosage: 40 MG, 1 IN 2 WK, SUBCUTANEOUS
     Route: 058
     Dates: start: 20040601
  2. ACETAMINOPHEN [Concomitant]
  3. FLUOXETINE HCL [Concomitant]
  4. PROPRANOLOL [Concomitant]
  5. FOLINIC ACID [Concomitant]
  6. DIAZEPAM [Concomitant]
  7. TRIAZOLAM [Concomitant]
  8. OMEPRAZOLE [Concomitant]

REACTIONS (2)
  - ARTHRITIS [None]
  - TENSION HEADACHE [None]
